FAERS Safety Report 9970016 (Version 1)
Quarter: 2014Q1

REPORT INFORMATION
  Report Type: Spontaneous
  Country: BE (occurrence: None)
  Receive Date: 20140304
  Receipt Date: 20140304
  Transmission Date: 20141002
  Serious: Yes (Hospitalization)
  Sender: FDA-Public Use
  Company Number: 7270329

PATIENT
  Sex: Male

DRUGS (1)
  1. LEVOTHYROXINE (LEVOTHYROXINE) (LEVOTHYROXINE SODIUM) [Suspect]
     Indication: THYROIDECTOMY
     Dosage: PRODUCT TAKEN BY MOTHER

REACTIONS (6)
  - Neonatal tachypnoea [None]
  - Foetal heart rate abnormal [None]
  - Caesarean section [None]
  - Apgar score low [None]
  - Congenital hyperthyroidism [None]
  - Maternal drugs affecting foetus [None]
